FAERS Safety Report 24017967 (Version 8)
Quarter: 2024Q4

REPORT INFORMATION
  Report Type: Spontaneous
  Country: EC (occurrence: EC)
  Receive Date: 20240627
  Receipt Date: 20241212
  Transmission Date: 20250114
  Serious: Yes (Disabling, Other)
  Sender: ROCHE
  Company Number: EC-ROCHE-10000007643

PATIENT
  Sex: Male

DRUGS (1)
  1. AVASTIN [Suspect]
     Active Substance: BEVACIZUMAB
     Indication: Retinopathy
     Dosage: 100 MG/4 ML
     Route: 050

REACTIONS (7)
  - Endophthalmitis [Unknown]
  - Product counterfeit [Unknown]
  - Off label use [Unknown]
  - Blindness [Unknown]
  - Eye pain [Unknown]
  - Product contamination [Unknown]
  - Pain [Unknown]

NARRATIVE: CASE EVENT DATE: 20240501
